FAERS Safety Report 7901641-7 (Version None)
Quarter: 2011Q4

REPORT INFORMATION
  Report Type: 
  Country: None (occurrence: None)
  Receive Date: 20111108
  Receipt Date: 20111026
  Transmission Date: 20120403
  Serious: Yes (Hospitalization)
  Sender: FDA-Public Use
  Company Number: US-ROCHE-796799

PATIENT
  Age: 59 Year
  Sex: Female
  Weight: 80.9 kg

DRUGS (3)
  1. PACLITAXEL [Suspect]
     Indication: OVARIAN EPITHELIAL CANCER
     Route: 042
  2. CARBOPLATIN [Suspect]
     Indication: OVARIAN EPITHELIAL CANCER
     Route: 042
  3. AVASTIN [Suspect]
     Indication: OVARIAN EPITHELIAL CANCER
     Dosage: INTRAVENOUS OVER 30-90 MINUTES ON DAY ONE.
     Route: 042

REACTIONS (7)
  - NEUTROPHIL COUNT DECREASED [None]
  - ANAEMIA [None]
  - NAUSEA [None]
  - OESOPHAGEAL PAIN [None]
  - VOMITING [None]
  - HYPOXIA [None]
  - TRACHEAL OBSTRUCTION [None]
